FAERS Safety Report 6182003-2 (Version None)
Quarter: 2009Q2

REPORT INFORMATION
  Report Type: 
  Country: None (occurrence: None)
  Receive Date: 20090505
  Receipt Date: 20090424
  Transmission Date: 20091009
  Serious: Yes (Hospitalization, Disabling)
  Sender: FDA-Public Use
  Company Number: 2009AL002454

PATIENT
  Sex: Male

DRUGS (1)
  1. DIGOXIN [Suspect]

REACTIONS (10)
  - ANXIETY [None]
  - CARDIAC DISORDER [None]
  - DEFORMITY [None]
  - DIZZINESS [None]
  - ECONOMIC PROBLEM [None]
  - ILL-DEFINED DISORDER [None]
  - INJURY [None]
  - PAIN [None]
  - SOCIAL PROBLEM [None]
  - VENTRICULAR TACHYCARDIA [None]
